FAERS Safety Report 6580825-7 (Version None)
Quarter: 2010Q1

REPORT INFORMATION
  Report Type: 
  Country: None (occurrence: None)
  Receive Date: 20100215
  Receipt Date: 20100204
  Transmission Date: 20100710
  Serious: Yes (Other)
  Sender: FDA-Public Use
  Company Number: US-BIOGENIDEC-2007BI022189

PATIENT
  Age: 61 Year
  Sex: Female
  Weight: 53 kg

DRUGS (2)
  1. AVONEX [Suspect]
     Indication: MULTIPLE SCLEROSIS
     Route: 030
     Dates: start: 19990120, end: 20031001
  2. AVONEX [Suspect]
     Route: 030
     Dates: start: 20031001

REACTIONS (13)
  - ARTHROPOD STING [None]
  - COLON ADENOMA [None]
  - CONSTIPATION [None]
  - COORDINATION ABNORMAL [None]
  - FUNGAL INFECTION [None]
  - GAIT DISTURBANCE [None]
  - IRRITABLE BOWEL SYNDROME [None]
  - LIGAMENT RUPTURE [None]
  - OEDEMA PERIPHERAL [None]
  - RECTAL CANCER [None]
  - SCAR [None]
  - TENDON RUPTURE [None]
  - WEIGHT DECREASED [None]
